FAERS Safety Report 4664987-4 (Version None)
Quarter: 2005Q2

REPORT INFORMATION
  Report Type: 
  Country: None (occurrence: None)
  Receive Date: 20050517
  Receipt Date: 20050404
  Transmission Date: 20051028
  Serious: Yes (Hospitalization)
  Sender: FDA-Public Use
  Company Number: AWBNIASPAND2004-82

PATIENT
  Age: 56 Year
  Sex: Male

DRUGS (9)
  1. NIASPAN [Suspect]
     Indication: HYPERLIPIDAEMIA
     Dosage: 500 MG QD PO
     Route: 048
     Dates: end: 20050101
  2. ATORVASTATIN CALCIUM [Concomitant]
  3. BISOPROLOL FUMARATE [Concomitant]
  4. CANDESARTAN CILEXETIL [Concomitant]
  5. MOLSIDOMINE [Concomitant]
  6. INSULIN [Concomitant]
  7. METFORMIN [Concomitant]
  8. INSULIN LISPRO [Concomitant]
  9. INSULIN GLARGINE [Concomitant]

REACTIONS (3)
  - ANGINA PECTORIS [None]
  - ASTHENIA [None]
  - FATIGUE [None]
